FAERS Safety Report 24791667 (Version 2)
Quarter: 2025Q1

REPORT INFORMATION
  Report Type: Spontaneous
  Country: JP (occurrence: JP)
  Receive Date: 20241231
  Receipt Date: 20250107
  Transmission Date: 20250409
  Serious: Yes (Other)
  Sender: JUBILANT
  Company Number: None

PATIENT
  Age: 8 Year
  Sex: Male
  Weight: 26 kg

DRUGS (12)
  1. RISPERIDONE [Suspect]
     Active Substance: RISPERIDONE
     Indication: Autism spectrum disorder
     Route: 048
  2. RISPERIDONE [Suspect]
     Active Substance: RISPERIDONE
     Indication: Attention deficit hyperactivity disorder
     Route: 048
  3. RISPERIDONE [Suspect]
     Active Substance: RISPERIDONE
     Dosage: 2 MG, ONCE PER DAY, GRANULES (PDF)
     Route: 048
  4. RISPERIDONE [Suspect]
     Active Substance: RISPERIDONE
     Dosage: 0.5 MG, ONCE PER DAY, GRANULES (PDF)
     Route: 048
  5. RISPERIDONE [Suspect]
     Active Substance: RISPERIDONE
     Route: 048
  6. METHYLPHENIDATE HYDROCHLORIDE [Suspect]
     Active Substance: METHYLPHENIDATE HYDROCHLORIDE
     Indication: Attention deficit hyperactivity disorder
     Dosage: 18 MG, ONCE PER DAY
     Route: 048
  7. METHYLPHENIDATE HYDROCHLORIDE [Suspect]
     Active Substance: METHYLPHENIDATE HYDROCHLORIDE
     Dosage: 27 MG, ONCE PER DAY
     Route: 048
  8. METHYLPHENIDATE HYDROCHLORIDE [Suspect]
     Active Substance: METHYLPHENIDATE HYDROCHLORIDE
     Route: 048
  9. GUANFACINE HYDROCHLORIDE [Concomitant]
     Active Substance: GUANFACINE HYDROCHLORIDE
     Indication: Attention deficit hyperactivity disorder
     Dosage: 3 MG, ONCE PER DAY
     Route: 048
  10. GUANFACINE HYDROCHLORIDE [Concomitant]
     Active Substance: GUANFACINE HYDROCHLORIDE
     Route: 048
  11. ATOMOXETINE [Concomitant]
     Active Substance: ATOMOXETINE
     Indication: Product used for unknown indication
     Route: 048
  12. METHYLPHENIDATE HYDROCHLORIDE [Suspect]
     Active Substance: METHYLPHENIDATE HYDROCHLORIDE
     Indication: Tic
     Dosage: 27 MG, ONCE PER DAY
     Route: 048

REACTIONS (4)
  - Oromandibular dystonia [Recovered/Resolved]
  - Drug interaction [Recovered/Resolved]
  - Treatment noncompliance [Unknown]
  - Off label use [Unknown]
